FAERS Safety Report 9953438 (Version 1)
Quarter: 2014Q1

REPORT INFORMATION
  Report Type: Report from Study
  Country: PR (occurrence: PR)
  Receive Date: 20140304
  Receipt Date: 20140304
  Transmission Date: 20141002
  Serious: No
  Sender: FDA-Public Use
  Company Number: PR-ABBVIE-13P-131-1082048-00

PATIENT
  Sex: Female

DRUGS (8)
  1. HUMIRA [Suspect]
     Indication: RHEUMATOID ARTHRITIS
     Route: 058
  2. PREDNISONE [Concomitant]
     Indication: RHEUMATOID ARTHRITIS
     Route: 048
  3. METHOTREXATE [Concomitant]
     Indication: RHEUMATOID ARTHRITIS
     Route: 058
  4. UNKNOWN YELLOW PILL [Concomitant]
     Indication: DIABETES MELLITUS
     Route: 048
  5. ADVAIR [Concomitant]
     Indication: ASTHMA
     Dosage: DAILY
     Route: 055
  6. PUMP LIKE AN EGG WITH PILL INSIDE OF IT [Concomitant]
     Indication: ASTHMA
     Dosage: DAILY
     Route: 055
  7. PANADOL [Concomitant]
     Indication: PRODUCT USED FOR UNKNOWN INDICATION
     Route: 048
  8. RANITIDINE [Concomitant]
     Indication: PRODUCT USED FOR UNKNOWN INDICATION
     Route: 048

REACTIONS (2)
  - Road traffic accident [Unknown]
  - Arthralgia [Unknown]
